FAERS Safety Report 8114849-5 (Version None)
Quarter: 2012Q1

REPORT INFORMATION
  Report Type: 
  Country: None (occurrence: None)
  Receive Date: 20120117
  Receipt Date: 20111006
  Transmission Date: 20120608
  Serious: Yes (Other)
  Sender: FDA-Public Use
  Company Number: 2011029989

PATIENT
  Age: 58 Year
  Sex: Female

DRUGS (3)
  1. BERINERT [Suspect]
     Indication: ANGIOEDEMA
     Dosage: (INTRAVENOUS (NOT OTHERWISE SPECIFIED))
     Route: 042
  2. DANAZOL [Concomitant]
  3. TRANEXAMIC ACID [Concomitant]

REACTIONS (2)
  - MEDICAL DEVICE COMPLICATION [None]
  - JUGULAR VEIN THROMBOSIS [None]
